FAERS Safety Report 15814874 (Version 2)
Quarter: 2019Q1

REPORT INFORMATION
  Report Type: Report from Study
  Country: ES (occurrence: ES)
  Receive Date: 20190111
  Receipt Date: 20190124
  Transmission Date: 20190417
  Serious: Yes (Other)
  Sender: FDA-Public Use
  Company Number: ES-ACCORD-101742

PATIENT
  Age: 42 Year
  Sex: Female
  Weight: 68.7 kg

DRUGS (4)
  1. RISPERDAL FLAS [Interacting]
     Active Substance: RISPERIDONE
     Indication: BIPOLAR DISORDER
     Dosage: 1/2-1/2-1, ALSO TAKEN 4.5 MG FROM 27-JUN-2016 TO 01-SEP-2016
     Route: 048
     Dates: start: 20160626, end: 20160627
  2. QUETIAPINE. [Suspect]
     Active Substance: QUETIAPINE
     Indication: BIPOLAR DISORDER
     Dosage: ALSO TAKEN 100 MG ON 27-JUN-2016 TO 10-SEP-2016(1-0-1),
     Route: 048
     Dates: start: 20160910, end: 20160913
  3. EUTIROX [Concomitant]
     Active Substance: LEVOTHYROXINE SODIUM
     Route: 048
  4. VENLAFAXINE/VENLAFAXINE HYDROCHLORIDE [Interacting]
     Active Substance: VENLAFAXINE HYDROCHLORIDE
     Indication: PSYCHOTIC DISORDER
     Route: 048
     Dates: start: 20160627

REACTIONS (2)
  - Abnormal weight gain [Not Recovered/Not Resolved]
  - Drug interaction [Unknown]

NARRATIVE: CASE EVENT DATE: 201606
